FAERS Safety Report 16192671 (Version 1)
Quarter: 2019Q2

REPORT INFORMATION
  Report Type: Spontaneous
  Country: US (occurrence: US)
  Receive Date: 20190412
  Receipt Date: 20190412
  Transmission Date: 20190711
  Serious: Yes (Hospitalization, Other)
  Sender: FDA-Public Use
  Company Number: US-ASTRAZENECA-2019SE55245

PATIENT
  Age: 915 Month
  Sex: Male
  Weight: 68 kg

DRUGS (30)
  1. GLIMEPIRIDE. [Concomitant]
     Active Substance: GLIMEPIRIDE
     Indication: DIABETES MELLITUS
     Route: 048
  2. PANTPRAZOL [Concomitant]
     Indication: GASTROINTESTINAL DISORDER
     Route: 048
  3. NITROGLYCERIN. [Concomitant]
     Active Substance: NITROGLYCERIN
     Indication: PAIN IN JAW
     Dosage: 0.4MG AS REQUIRED
     Route: 048
     Dates: start: 2018
  4. NITROGLYCERIN. [Concomitant]
     Active Substance: NITROGLYCERIN
     Indication: ARTHRALGIA
     Dosage: 0.2MG AS REQUIRED
     Route: 062
  5. BRILINTA [Suspect]
     Active Substance: TICAGRELOR
     Indication: MYOCARDIAL INFARCTION
     Route: 048
     Dates: start: 201812
  6. ATORVASTATIN [Concomitant]
     Active Substance: ATORVASTATIN
     Indication: BLOOD CHOLESTEROL ABNORMAL
     Route: 048
  7. GLUCAMINE [Concomitant]
     Indication: ARTHRALGIA
     Dosage: DAILY
     Route: 048
  8. POTASSIUM [Concomitant]
     Active Substance: POTASSIUM
     Dosage: DAILY
     Route: 048
  9. LATANOPROST. [Concomitant]
     Active Substance: LATANOPROST
     Indication: GLAUCOMA
     Route: 047
     Dates: start: 2014
  10. OLMESARTAN MEDOXOMIL. [Concomitant]
     Active Substance: OLMESARTAN MEDOXOMIL
     Indication: BLOOD PRESSURE ABNORMAL
     Route: 048
     Dates: start: 201812
  11. FINASTERIDE. [Concomitant]
     Active Substance: FINASTERIDE
     Indication: PROSTATOMEGALY
     Route: 048
  12. TEMAZEPAM. [Concomitant]
     Active Substance: TEMAZEPAM
     Indication: SLEEP DISORDER
     Route: 048
  13. OXYBUTINE [Concomitant]
     Indication: URINARY TRACT DISORDER
     Route: 048
     Dates: start: 2015
  14. VITAMIN D2 [Concomitant]
     Active Substance: ERGOCALCIFEROL
     Dosage: 50000 ONCE A WEEK
     Route: 048
     Dates: start: 2018
  15. NITROGLYCERIN. [Concomitant]
     Active Substance: NITROGLYCERIN
     Indication: PAIN IN JAW
     Dosage: 0.2MG AS REQUIRED
     Route: 062
  16. FISH OIL [Concomitant]
     Active Substance: FISH OIL
     Dosage: DAILY
     Route: 048
  17. METOPROLOL SUCCINATE. [Suspect]
     Active Substance: METOPROLOL SUCCINATE
     Indication: HYPERTENSION
     Route: 048
  18. BRILINTA [Suspect]
     Active Substance: TICAGRELOR
     Indication: STENT PLACEMENT
     Route: 048
     Dates: start: 201812
  19. ASPIRIN. [Concomitant]
     Active Substance: ASPIRIN
     Indication: ANTICOAGULANT THERAPY
     Route: 048
     Dates: start: 2017
  20. JAUVIA [Concomitant]
     Indication: DIABETES MELLITUS
     Route: 048
     Dates: start: 2018
  21. TERAZOSIN [Concomitant]
     Active Substance: TERAZOSIN\TERAZOSIN HYDROCHLORIDE
     Indication: PROPHYLAXIS
     Route: 048
  22. ALPRAZOLAM. [Concomitant]
     Active Substance: ALPRAZOLAM
     Indication: ANXIETY
     Route: 048
  23. PROBIOTIC [Concomitant]
     Active Substance: PROBIOTICS NOS
     Dosage: DAILY
     Route: 048
  24. FIBER [Concomitant]
     Active Substance: PSYLLIUM HUSK
     Dosage: DAILY
     Route: 048
  25. METFORMIN [Concomitant]
     Active Substance: METFORMIN HYDROCHLORIDE
     Indication: DIABETES MELLITUS
     Route: 048
  26. METFORMIN [Concomitant]
     Active Substance: METFORMIN HYDROCHLORIDE
     Indication: DIABETES MELLITUS
     Route: 048
  27. NITROGLYCERIN. [Concomitant]
     Active Substance: NITROGLYCERIN
     Indication: ARTHRALGIA
     Dosage: 0.4MG AS REQUIRED
     Route: 048
     Dates: start: 2018
  28. MULTI VITAMIN [Concomitant]
     Active Substance: VITAMINS
     Dosage: DAILY
     Route: 048
  29. SUCRALFATE. [Concomitant]
     Active Substance: SUCRALFATE
     Indication: GASTROINTESTINAL DISORDER
     Route: 048
     Dates: start: 2016
  30. TRAMADOL. [Concomitant]
     Active Substance: TRAMADOL
     Indication: ARTHRALGIA
     Dosage: 50.0MG AS REQUIRED
     Route: 048

REACTIONS (18)
  - Pain in jaw [Unknown]
  - Type 2 diabetes mellitus [Unknown]
  - Mental disorder [Unknown]
  - Staphylococcal infection [Recovered/Resolved]
  - Dyspnoea [Not Recovered/Not Resolved]
  - Depressed mood [Unknown]
  - Myocardial infarction [Recovered/Resolved]
  - Cerebrovascular accident [Unknown]
  - Pain in extremity [Not Recovered/Not Resolved]
  - Coronary artery occlusion [Unknown]
  - Loss of consciousness [Unknown]
  - Fear [Unknown]
  - Memory impairment [Unknown]
  - Anxiety [Unknown]
  - Fatigue [Unknown]
  - Heart valve incompetence [Unknown]
  - Inguinal hernia [Unknown]
  - Sleep disorder [Not Recovered/Not Resolved]

NARRATIVE: CASE EVENT DATE: 201812
